FAERS Safety Report 19075740 (Version 1)
Quarter: 2021Q1

REPORT INFORMATION
  Report Type: Spontaneous
  Country: JP (occurrence: JP)
  Receive Date: 20210330
  Receipt Date: 20210330
  Transmission Date: 20210420
  Serious: Yes (Death, Other)
  Sender: FDA-Public Use
  Company Number: JP-TEVA-2021-JP-1891121

PATIENT
  Age: 86 Year
  Sex: Male

DRUGS (6)
  1. RITUXIMAB. [Suspect]
     Active Substance: RITUXIMAB
     Dosage: (4 COURSES)
     Route: 041
  2. BENDAMUSTINE HYDROCHLORIDE. [Suspect]
     Active Substance: BENDAMUSTINE HYDROCHLORIDE
     Dosage: (90MG/M2/DAY) 2 COURSES
     Route: 042
  3. THP [Concomitant]
     Active Substance: UNSPECIFIED INGREDIENT
     Indication: PRODUCT USED FOR UNKNOWN INDICATION
     Dosage: 8 COURSES OF R?THP?COP
     Route: 065
  4. RITUXIMAB. [Suspect]
     Active Substance: RITUXIMAB
     Indication: MANTLE CELL LYMPHOMA RECURRENT
     Dosage: (2 COURSES)
     Route: 041
  5. BENDAMUSTINE HYDROCHLORIDE. [Suspect]
     Active Substance: BENDAMUSTINE HYDROCHLORIDE
     Indication: MANTLE CELL LYMPHOMA RECURRENT
     Dosage: (90MG/M2/DAY) (3 COURSES)
     Route: 042
  6. CYCLOPHOSPHAMIDE;PREDNISONE;RITUXIMAB;VINCRISTINE [Concomitant]
     Indication: PRODUCT USED FOR UNKNOWN INDICATION
     Dosage: 8 COURSES OF R?THP?COP
     Route: 065

REACTIONS (5)
  - Granulocyte-colony stimulating factor level increased [Unknown]
  - Neutrophil count decreased [Recovered/Resolved]
  - Platelet count decreased [Unknown]
  - Cardiac failure [Fatal]
  - Lymphocyte count decreased [Recovered/Resolved]
